FAERS Safety Report 16746231 (Version 1)
Quarter: 2019Q3

REPORT INFORMATION
  Report Type: Spontaneous
  Country: US (occurrence: US)
  Receive Date: 20190827
  Receipt Date: 20190827
  Transmission Date: 20191005
  Serious: No
  Sender: FDA-Public Use
  Company Number: US-EVOLUS, INC.-2019EV000079

PATIENT
  Age: 39 Year
  Sex: Female

DRUGS (2)
  1. JEUVEAU [Suspect]
     Active Substance: PRABOTULINUMTOXINA-XVFS
     Indication: SKIN WRINKLING
     Route: 030
     Dates: start: 20190627, end: 20190627
  2. JEUVEAU [Suspect]
     Active Substance: PRABOTULINUMTOXINA-XVFS
     Indication: PRODUCT USED FOR UNKNOWN INDICATION
     Route: 030
     Dates: start: 20190627, end: 20190627

REACTIONS (3)
  - Headache [Recovered/Resolved]
  - Off label use [Recovered/Resolved]
  - Throat tightness [Recovered/Resolved]

NARRATIVE: CASE EVENT DATE: 20190627
